FAERS Safety Report 20867318 (Version 1)
Quarter: 2022Q2

REPORT INFORMATION
  Report Type: Spontaneous
  Country: US (occurrence: US)
  Receive Date: 20220524
  Receipt Date: 20220524
  Transmission Date: 20220721
  Serious: No
  Sender: FDA-Public Use
  Company Number: US-Calliditas-2022CAL00084

PATIENT
  Age: 59 Year
  Sex: Male

DRUGS (1)
  1. TARPEYO [Suspect]
     Active Substance: BUDESONIDE
     Indication: IgA nephropathy
     Dosage: 16 MG (4MG CAPSULES) DAILY
     Route: 050
     Dates: start: 20220427

REACTIONS (7)
  - Dizziness [Unknown]
  - Vertigo [Unknown]
  - Anxiety [Unknown]
  - Panic attack [Unknown]
  - Tremor [Unknown]
  - Insomnia [Unknown]
  - Malaise [Unknown]
